FAERS Safety Report 9323865 (Version 2)
Quarter: 2013Q2

REPORT INFORMATION
  Report Type: Spontaneous
  Country: GB (occurrence: GB)
  Receive Date: 20130603
  Receipt Date: 20130618
  Transmission Date: 20140414
  Serious: Yes (Death, Other)
  Sender: FDA-Public Use
  Company Number: GB-PFIZER INC-2013165715

PATIENT
  Age: 86 Year
  Sex: 0

DRUGS (2)
  1. VIAGRA [Suspect]
     Dosage: 50 MG, UNK
  2. AMBRISENTAN [Suspect]
     Dosage: 10 MG, UNK

REACTIONS (1)
  - Death [Fatal]
